FAERS Safety Report 10667984 (Version 2)
Quarter: 2014Q4

REPORT INFORMATION
  Report Type: Spontaneous
  Country: US (occurrence: US)
  Receive Date: 20141222
  Receipt Date: 20141222
  Transmission Date: 20150529
  Serious: Yes (Other)
  Sender: FDA-Public Use
  Company Number: US-UNITED THERAPEUTICS-UNT-2014-009538

PATIENT
  Sex: Female

DRUGS (2)
  1. TYVASO [Suspect]
     Active Substance: TREPROSTINIL
     Indication: PULMONARY ARTERIAL HYPERTENSION
     Dosage: 36 ?G, QID
     Dates: start: 20140829
  2. TYVASO [Suspect]
     Active Substance: TREPROSTINIL
     Dosage: 54 ?G, UNK
     Dates: start: 20140902, end: 201412

REACTIONS (13)
  - Vomiting [Unknown]
  - Joint injury [Unknown]
  - Systemic lupus erythematosus [Unknown]
  - Drug intolerance [Unknown]
  - Feeling abnormal [Unknown]
  - Dizziness [Unknown]
  - Hand fracture [Unknown]
  - Chest pain [Unknown]
  - Nausea [Unknown]
  - Headache [Unknown]
  - Fall [Unknown]
  - Oral pain [Unknown]
  - Decreased appetite [Unknown]

NARRATIVE: CASE EVENT DATE: 2014
